FAERS Safety Report 7905368-7 (Version None)
Quarter: 2011Q4

REPORT INFORMATION
  Report Type: 
  Country: None (occurrence: None)
  Receive Date: 20111109
  Receipt Date: 20111101
  Transmission Date: 20120403
  Serious: Yes (Hospitalization)
  Sender: FDA-Public Use
  Company Number: US-ABBOTT-11P-163-0870575-00

PATIENT
  Age: 44 Year
  Sex: Female

DRUGS (3)
  1. BIRTH CONTROL PILLS [Concomitant]
     Indication: PRODUCT USED FOR UNKNOWN INDICATION
     Dosage: LOW DOSE
  2. HUMIRA [Suspect]
     Indication: PSORIATIC ARTHROPATHY
     Dates: start: 20090901
  3. TOPAMAX [Concomitant]
     Indication: MIGRAINE
     Dates: start: 20100801

REACTIONS (6)
  - CEREBROVASCULAR ACCIDENT [None]
  - PARAESTHESIA [None]
  - THROMBOSIS [None]
  - PROTHROMBIN TIME ABNORMAL [None]
  - ATRIAL SEPTAL DEFECT [None]
  - HYPOAESTHESIA [None]
